FAERS Safety Report 4358912-3 (Version None)
Quarter: 2004Q2

REPORT INFORMATION
  Report Type: 
  Country: None (occurrence: None)
  Receive Date: 20040517
  Receipt Date: 20040425
  Transmission Date: 20050107
  Serious: Yes (Hospitalization, Disabling)
  Sender: FDA-Public Use
  Company Number: US-BRISTOL-MYERS SQUIBB COMPANY-12572079

PATIENT
  Age: 69 Year
  Sex: Male

DRUGS (6)
  1. GLUCOVANCE [Suspect]
     Indication: DIABETES MELLITUS
     Route: 048
     Dates: start: 20040301
  2. LIPITOR [Concomitant]
  3. ASPIRIN [Concomitant]
  4. LEXAPRO [Concomitant]
  5. WELLBUTRIN SR [Concomitant]
  6. LOTREL [Concomitant]
     Dosage: DOSE:  5/20

REACTIONS (3)
  - FALL [None]
  - GAIT DISTURBANCE [None]
  - OEDEMA [None]
